FAERS Safety Report 9997883 (Version 1)
Quarter: 2014Q1

REPORT INFORMATION
  Report Type: Spontaneous
  Country: US (occurrence: US)
  Receive Date: 20140311
  Receipt Date: 20140311
  Transmission Date: 20141002
  Serious: No
  Sender: FDA-Public Use
  Company Number: US-PFIZER INC-2014067521

PATIENT
  Age: 66 Year
  Sex: Female

DRUGS (1)
  1. ESTROGENS CONJUGATED/MEDROXYPROGESTERONE ACETATE [Suspect]
     Dosage: UNK

REACTIONS (2)
  - Drug hypersensitivity [Unknown]
  - Alopecia [Unknown]
